FAERS Safety Report 10066225 (Version 1)
Quarter: 2014Q2

REPORT INFORMATION
  Report Type: Spontaneous
  Country: US (occurrence: US)
  Receive Date: 20140408
  Receipt Date: 20140408
  Transmission Date: 20141212
  Serious: Yes (Other)
  Sender: FDA-Public Use
  Company Number: US-ELI_LILLY_AND_COMPANY-US201403010748

PATIENT
  Sex: Male

DRUGS (10)
  1. HUMALOG LISPRO [Suspect]
     Indication: TYPE 2 DIABETES MELLITUS
     Dosage: UNK
     Route: 065
  2. HUMALOG LISPRO [Suspect]
     Dosage: UNK, PRN
     Route: 065
  3. LANTUS [Concomitant]
  4. SIMVASTATIN [Concomitant]
  5. LISINOPRIL [Concomitant]
  6. FUROSEMIDE [Concomitant]
  7. ALLOPURINOL [Concomitant]
  8. B12 [Concomitant]
  9. VITAMIN D3 [Concomitant]
  10. FISH OIL [Concomitant]

REACTIONS (5)
  - Renal impairment [Unknown]
  - Cataract [Unknown]
  - Diabetic retinopathy [Unknown]
  - Neuropathy peripheral [Unknown]
  - Glycosylated haemoglobin increased [Unknown]
